FAERS Safety Report 13074946 (Version 1)
Quarter: 2016Q4

REPORT INFORMATION
  Report Type: Spontaneous
  Country: US (occurrence: US)
  Receive Date: 20161230
  Receipt Date: 20161230
  Transmission Date: 20170207
  Serious: No
  Sender: FDA-Public Use
  Company Number: US-PFIZER INC-2016603272

PATIENT
  Age: 16 Year
  Sex: Male
  Weight: 75 kg

DRUGS (2)
  1. ADVIL [Suspect]
     Active Substance: IBUPROFEN
     Indication: HEADACHE
     Dosage: 2 DF, SINGLE
     Route: 048
     Dates: start: 201610, end: 201610
  2. ADVIL [Suspect]
     Active Substance: IBUPROFEN
     Dosage: 2 DF, SINGLE
     Route: 048
     Dates: start: 20161227, end: 20161227

REACTIONS (4)
  - Abdominal pain upper [Recovering/Resolving]
  - Diarrhoea [Unknown]
  - Vomiting [Recovered/Resolved]
  - Nausea [Recovered/Resolved]

NARRATIVE: CASE EVENT DATE: 2016
